FAERS Safety Report 8868714 (Version 1)
Quarter: 2012Q4

REPORT INFORMATION
  Report Type: 
  Country: US (occurrence: US)
  Receive Date: 20121026
  Receipt Date: 20121026
  Transmission Date: 20130627
  Serious: No
  Sender: FDA-Public Use
  Company Number: US-AMGEN-USASP2012047618

PATIENT
  Age: 36 Year
  Sex: Male

DRUGS (3)
  1. ENBREL [Suspect]
     Indication: PRODUCT USED FOR UNKNOWN INDICATION
     Dosage: 50 mg, qwk
     Route: 058
  2. MAALOX MAX [Concomitant]
     Dosage: SUS MINT
  3. ACIPHEX [Concomitant]
     Dosage: 20 mg, UNK

REACTIONS (5)
  - Gastrointestinal disorder [Unknown]
  - Abdominal pain upper [Unknown]
  - Abdominal distension [Unknown]
  - Weight increased [Unknown]
  - Lymphadenopathy [Unknown]
